FAERS Safety Report 8496038-8 (Version None)
Quarter: 2012Q3

REPORT INFORMATION
  Report Type: 
  Country: None (occurrence: None)
  Receive Date: 20120709
  Receipt Date: 20120625
  Transmission Date: 20120928
  Serious: Yes (Death, Hospitalization)
  Sender: FDA-Public Use
  Company Number: FR-ROCHE-5829

PATIENT
  Age: 75 Year
  Sex: Female

DRUGS (3)
  1. NAPROXEN [Suspect]
     Indication: BACK PAIN
     Route: 048
  2. COLTRAMYL [Suspect]
     Indication: BACK PAIN
  3. VOLTAREN [Suspect]
     Indication: BACK PAIN
     Route: 030

REACTIONS (3)
  - THROMBOCYTOPENIA [None]
  - ECCHYMOSIS [None]
  - BONE MARROW FAILURE [None]
